FAERS Safety Report 19111390 (Version 1)
Quarter: 2021Q2

REPORT INFORMATION
  Report Type: Spontaneous
  Country: US (occurrence: US)
  Receive Date: 20210408
  Receipt Date: 20210408
  Transmission Date: 20210717
  Serious: Yes (Death, Other)
  Sender: FDA-Public Use
  Company Number: US-009507513-2103USA007853

PATIENT
  Age: 73 Year
  Sex: Female

DRUGS (49)
  1. JAKAFI [Suspect]
     Active Substance: RUXOLITINIB
     Dosage: 10 MILLIGRAM, BID
     Route: 048
     Dates: start: 20201128
  2. ENTOCORT [Concomitant]
     Active Substance: BUDESONIDE
     Dosage: UNK
     Dates: start: 20201121
  3. DELTASONE [Concomitant]
     Active Substance: PREDNISONE
  4. ROCEPHIN [Concomitant]
     Active Substance: CEFTRIAXONE SODIUM
  5. SODIUM CHLORIDE. [Concomitant]
     Active Substance: SODIUM CHLORIDE
  6. ZOVIRAX [Concomitant]
     Active Substance: ACYCLOVIR
  7. MAXIPIME [Concomitant]
     Active Substance: CEFEPIME HYDROCHLORIDE
  8. PERIDEX (CHLORHEXIDINE GLUCONATE) [Concomitant]
  9. DEXTROSE. [Concomitant]
     Active Substance: DEXTROSE
  10. KEPPRA [Concomitant]
     Active Substance: LEVETIRACETAM
  11. ALBUMIN HUMAN [Concomitant]
     Active Substance: ALBUMIN HUMAN
  12. GLUCAGEN [Concomitant]
     Active Substance: GLUCAGON HYDROCHLORIDE
  13. CAPHOSOL [Concomitant]
     Active Substance: CALCIUM CHLORIDE\SODIUM CHLORIDE\SODIUM PHOSPHATE, DIBASIC, ANHYDROUS\SODIUM PHOSPHATE, MONOBASIC, ANHYDROUS
  14. CLARITIN [Concomitant]
     Active Substance: LORATADINE
  15. VANCOMYCIN [Concomitant]
     Active Substance: VANCOMYCIN
  16. BECLOMETHASONE DIPROPIONATE [Concomitant]
     Active Substance: BECLOMETHASONE DIPROPIONATE
  17. HEPARIN [Concomitant]
     Active Substance: HEPARIN SODIUM
  18. ROXICODONE [Concomitant]
     Active Substance: OXYCODONE HYDROCHLORIDE
  19. POTASSIUM PHOSPHATE, DIBASIC [Concomitant]
     Active Substance: POTASSIUM PHOSPHATE, DIBASIC
  20. NOXAFIL [Suspect]
     Active Substance: POSACONAZOLE
     Indication: PRODUCT USED FOR UNKNOWN INDICATION
     Dosage: UNK
     Route: 042
     Dates: end: 20201216
  21. ROCALTROL [Concomitant]
     Active Substance: CALCITRIOL
  22. SYNTHROID [Concomitant]
     Active Substance: LEVOTHYROXINE SODIUM
  23. BLISTEX MEDICATED MINT LIP BALM [Concomitant]
     Active Substance: DIMETHICONE\OXYBENZONE\PADIMATE O
  24. LOVENOX [Concomitant]
     Active Substance: ENOXAPARIN SODIUM
  25. NOXAFIL [Suspect]
     Active Substance: POSACONAZOLE
     Dosage: 300 MILLIGRAM
     Route: 042
  26. JAKAFI [Suspect]
     Active Substance: RUXOLITINIB
     Dosage: 10 MILLIGRAM
     Dates: start: 20201208
  27. PROGRAF [Concomitant]
     Active Substance: TACROLIMUS
     Dosage: UNK
     Dates: start: 20201119
  28. MAGNESIUM SULFATE. [Concomitant]
     Active Substance: MAGNESIUM SULFATE
  29. FLAGYL [Concomitant]
     Active Substance: METRONIDAZOLE\METRONIDAZOLE HYDROCHLORIDE
  30. ZOFRAN [Concomitant]
     Active Substance: ONDANSETRON HYDROCHLORIDE
  31. DEFINITY [Concomitant]
     Active Substance: PERFLUTREN
  32. COMPAZINE (PROCHLORPERAZINE EDISYLATE) [Concomitant]
     Active Substance: PROCHLORPERAZINE EDISYLATE
  33. BACTRIM [Concomitant]
     Active Substance: SULFAMETHOXAZOLE\TRIMETHOPRIM
  34. CATHFLO ACTIVASE [Concomitant]
     Active Substance: ALTEPLASE
  35. JAKAFI [Suspect]
     Active Substance: RUXOLITINIB
     Indication: GRAFT VERSUS HOST DISEASE IN GASTROINTESTINAL TRACT
     Dosage: 5 MILLIGRAM
  36. JAKAFI [Suspect]
     Active Substance: RUXOLITINIB
     Dosage: 5 MILLIGRAM
     Route: 048
     Dates: start: 20201205
  37. SOLU?MEDROL [Concomitant]
     Active Substance: METHYLPREDNISOLONE SODIUM SUCCINATE
     Dosage: UNK
     Dates: start: 20201118
  38. ARTIFICIAL TEARS (HYPROMELLOSE) [Concomitant]
  39. POTASSIUM CHLORIDE. [Concomitant]
     Active Substance: POTASSIUM CHLORIDE
  40. ZOLOFT [Concomitant]
     Active Substance: SERTRALINE HYDROCHLORIDE
  41. DEXTROSE. [Concomitant]
     Active Substance: DEXTROSE
     Route: 042
  42. FLONASE [Concomitant]
     Active Substance: FLUTICASONE PROPIONATE
  43. NEURONTIN [Concomitant]
     Active Substance: GABAPENTIN
  44. MELATONIN [Concomitant]
     Active Substance: MELATONIN
  45. NOVOLOG [Concomitant]
     Active Substance: INSULIN ASPART
  46. LEVOPHED [Concomitant]
     Active Substance: NOREPINEPHRINE BITARTRATE
  47. PROTONIX [Concomitant]
     Active Substance: PANTOPRAZOLE SODIUM
  48. AMINO ACIDS (UNSPECIFIED) (+) CARBOHYDRATES (UNSPECIFIED) (+) MINERALS [Concomitant]
  49. VASOSTRICT [Concomitant]
     Active Substance: VASOPRESSIN

REACTIONS (21)
  - Cardiac arrest [Not Recovered/Not Resolved]
  - Adenovirus infection [Not Recovered/Not Resolved]
  - Pupillary reflex impaired [Not Recovered/Not Resolved]
  - Graft versus host disease in gastrointestinal tract [Fatal]
  - Unresponsive to stimuli [Not Recovered/Not Resolved]
  - Paraneoplastic syndrome [Not Recovered/Not Resolved]
  - Blood urea increased [Not Recovered/Not Resolved]
  - Urinary tract infection [Not Recovered/Not Resolved]
  - Muscle twitching [Not Recovered/Not Resolved]
  - Transaminases increased [Not Recovered/Not Resolved]
  - Interstitial lung disease [Fatal]
  - Myasthenia gravis [Not Recovered/Not Resolved]
  - Oedema peripheral [Not Recovered/Not Resolved]
  - Bacterial infection [Not Recovered/Not Resolved]
  - Dysphonia [Not Recovered/Not Resolved]
  - Respiratory failure [Fatal]
  - Enterobacter bacteraemia [Not Recovered/Not Resolved]
  - Pneumonia viral [Not Recovered/Not Resolved]
  - Hyperbilirubinaemia [Recovered/Resolved]
  - Decubitus ulcer [Not Recovered/Not Resolved]
  - Brain injury [Not Recovered/Not Resolved]

NARRATIVE: CASE EVENT DATE: 20201209
